FAERS Safety Report 20845328 (Version 3)
Quarter: 2022Q4

REPORT INFORMATION
  Report Type: Report from Study
  Country: CZ (occurrence: CZ)
  Receive Date: 20220518
  Receipt Date: 20221116
  Transmission Date: 20230112
  Serious: Yes (Hospitalization, Other)
  Sender: FDA-Public Use
  Company Number: CZ-UCBSA-2022027422

PATIENT
  Age: 75 Year
  Sex: Male

DRUGS (3)
  1. CIMZIA [Suspect]
     Active Substance: CERTOLIZUMAB PEGOL
     Indication: Psoriatic arthropathy
     Dosage: 200 MILLIGRAM, EV 2 WEEKS(QOW)
     Route: 058
     Dates: start: 20160127, end: 20220502
  2. CIMZIA [Suspect]
     Active Substance: CERTOLIZUMAB PEGOL
     Dosage: 200 MILLIGRAM, EV 2 WEEKS(QOW)
     Dates: start: 2022, end: 20220718
  3. CIMZIA [Suspect]
     Active Substance: CERTOLIZUMAB PEGOL
     Dosage: 200 MILLIGRAM, EV 2 WEEKS(QOW)
     Dates: start: 2022, end: 20221026

REACTIONS (5)
  - Pneumonia [Recovering/Resolving]
  - COVID-19 [Recovering/Resolving]
  - Cardiac disorder [Recovered/Resolved]
  - Hemiparesis [Not Recovered/Not Resolved]
  - Cardiac pacemaker insertion [Recovered/Resolved]

NARRATIVE: CASE EVENT DATE: 20220325
